FAERS Safety Report 11127431 (Version 3)
Quarter: 2015Q2

REPORT INFORMATION
  Report Type: Spontaneous
  Country: US (occurrence: None)
  Receive Date: 20150519
  Receipt Date: 20150529
  Transmission Date: 20150821
  Serious: Yes (Hospitalization)
  Sender: FDA-Public Use
  Company Number: KAD201505-001166

PATIENT
  Age: 25 Year
  Sex: Female

DRUGS (2)
  1. VIEKIRA PAK [Suspect]
     Active Substance: DASABUVIR\OMBITASVIR\PARITAPREVIR\RITONAVIR
     Indication: HEPATITIS C
     Dosage: 2 PINK TABLET QD AM/1 BEIGE TABLET BID AM/PM W/ FOOD, ONE IN 12 HR, ORAL
     Route: 048
     Dates: start: 20150315, end: 20150319
  2. RIBAVIRIN. [Suspect]
     Active Substance: RIBAVIRIN
     Indication: HEPATITIS C
     Route: 048
     Dates: start: 2015, end: 2015

REACTIONS (19)
  - Lethargy [None]
  - Decreased appetite [None]
  - Nausea [None]
  - Blood urea increased [None]
  - Dyspepsia [None]
  - Dry skin [None]
  - Laboratory test abnormal [None]
  - Vomiting [None]
  - Blood creatinine increased [None]
  - Weight decreased [None]
  - Dyspnoea [None]
  - Acute kidney injury [None]
  - Haemoglobin decreased [None]
  - Screaming [None]
  - Headache [None]
  - Blood pressure immeasurable [None]
  - Dehydration [None]
  - Pruritus [None]
  - Fatigue [None]

NARRATIVE: CASE EVENT DATE: 20150318
